FAERS Safety Report 10272715 (Version 5)
Quarter: 2014Q4

REPORT INFORMATION
  Report Type: Spontaneous
  Country: IT (occurrence: IT)
  Receive Date: 20140702
  Receipt Date: 20141022
  Transmission Date: 20150528
  Serious: Yes (Hospitalization)
  Sender: FDA-Public Use
  Company Number: IT-SA-2014SA082922

PATIENT
  Age: 20 Year
  Sex: Male

DRUGS (13)
  1. COUMADIN [Concomitant]
     Active Substance: WARFARIN SODIUM
     Dosage: 5 MG TABLETS
     Route: 048
  2. DEPAKENE [Concomitant]
     Active Substance: VALPROIC ACID
     Dosage: 500 MG PROLONGED RELEASE TABLETS
     Route: 048
  3. SOLOSTAR [Concomitant]
     Active Substance: DEVICE
     Dates: start: 20101007, end: 20140212
  4. LORTAAN [Concomitant]
     Active Substance: LOSARTAN POTASSIUM
     Dosage: 100 MG FILM-COATED TABLETS
     Route: 048
  5. LANOXIN [Concomitant]
     Active Substance: DIGOXIN
     Dosage: 0.0625 MG TABLETS
     Route: 048
  6. GLUCOPHAGE [Suspect]
     Active Substance: METFORMIN HYDROCHLORIDE
     Indication: MEDICATION ERROR
     Route: 048
     Dates: start: 20101007, end: 20140618
  7. SINVACOR [Concomitant]
     Active Substance: SIMVASTATIN
     Dosage: 40 MG FILM-COATED TABLETS
     Route: 048
  8. NOVORAPID [Suspect]
     Active Substance: INSULIN ASPART
     Indication: MEDICATION ERROR
     Dosage: DOSE:64 UNIT(S)
     Route: 058
     Dates: start: 20101007, end: 20140618
  9. AMIODAR [Concomitant]
     Active Substance: AMIODARONE
     Dosage: 200 MG TABLET
     Route: 048
  10. LASIX [Concomitant]
     Active Substance: FUROSEMIDE
     Dosage: 25 MG TABLETS
     Route: 048
  11. LANTUS SOLOSTAR [Suspect]
     Active Substance: INSULIN GLARGINE
     Indication: MEDICATION ERROR
     Dosage: DOSE:46 UNIT(S)
     Route: 058
     Dates: start: 20101007, end: 20140212
  12. HUMALOG [Suspect]
     Active Substance: INSULIN LISPRO
     Indication: MEDICATION ERROR
     Dosage: DOSE:18 UNIT(S)
     Route: 058
     Dates: start: 20111101, end: 20131104
  13. SOLOSTAR [Concomitant]
     Active Substance: DEVICE
     Dates: start: 20110101, end: 20131104

REACTIONS (5)
  - Hypoglycaemia [Recovered/Resolved]
  - Epilepsy [Recovered/Resolved]
  - Injury [Recovered/Resolved]
  - Lip injury [Recovered/Resolved]
  - Medication error [Recovered/Resolved]

NARRATIVE: CASE EVENT DATE: 20131030
